FAERS Safety Report 8007211-7 (Version None)
Quarter: 2011Q4

REPORT INFORMATION
  Report Type: 
  Country: None (occurrence: None)
  Receive Date: 20111227
  Receipt Date: 20111221
  Transmission Date: 20120403
  Serious: Yes (Hospitalization)
  Sender: FDA-Public Use
  Company Number: JP-PFIZER INC-2011277606

PATIENT
  Age: 70 Year
  Sex: Female
  Weight: 42.5 kg

DRUGS (8)
  1. ZOLOFT [Suspect]
     Dosage: 50 MG, 1X/DAY
     Route: 048
     Dates: start: 20111104, end: 20111108
  2. HALCION [Concomitant]
     Indication: INSOMNIA
     Dosage: 0.125 MG, 1X/DAY
     Route: 048
     Dates: start: 20111027, end: 20111103
  3. DEPAS [Concomitant]
     Dosage: AS NEEDED
  4. GOODMIN [Concomitant]
     Indication: INSOMNIA
     Dosage: 0.25 MG, 1X/DAY
     Route: 048
     Dates: start: 20111020, end: 20111026
  5. GASMOTIN [Concomitant]
     Indication: GASTRITIS
     Dosage: 5 MG, 3X/DAY
     Route: 048
     Dates: start: 20111020, end: 20111026
  6. ZOLOFT [Suspect]
     Indication: DEPRESSION
     Dosage: 25 MG, 1X/DAY
     Route: 048
     Dates: start: 20111020, end: 20111026
  7. ZOLOFT [Suspect]
     Dosage: 50 MG, 1X/DAY
     Route: 048
     Dates: start: 20111027, end: 20111101
  8. ZOLOFT [Suspect]
     Dosage: 100 MG, 1X/DAY
     Route: 048
     Dates: start: 20111102, end: 20111103

REACTIONS (4)
  - ALTERED STATE OF CONSCIOUSNESS [None]
  - THIRST [None]
  - DIARRHOEA [None]
  - INAPPROPRIATE ANTIDIURETIC HORMONE SECRETION [None]
